FAERS Safety Report 21936503 (Version 1)
Quarter: 2023Q1

REPORT INFORMATION
  Report Type: Report from Study
  Country: US (occurrence: US)
  Receive Date: 20230201
  Receipt Date: 20230201
  Transmission Date: 20230418
  Serious: Yes (Other)
  Sender: FDA-Public Use
  Company Number: US-UCBSA-2023004986

PATIENT
  Age: 59 Year
  Sex: Female

DRUGS (1)
  1. CERTOLIZUMAB PEGOL [Suspect]
     Active Substance: CERTOLIZUMAB PEGOL
     Indication: Rheumatoid arthritis
     Dosage: 400 MILLIGRAM, EV 4 WEEKS
     Route: 058
     Dates: start: 20220705

REACTIONS (5)
  - Pneumonia [Recovered/Resolved]
  - Influenza [Recovered/Resolved]
  - Fatigue [Unknown]
  - Arthralgia [Unknown]
  - Insurance issue [Unknown]

NARRATIVE: CASE EVENT DATE: 20221111
